FAERS Safety Report 4376316-4 (Version None)
Quarter: 2004Q2

REPORT INFORMATION
  Report Type: 
  Country: None (occurrence: None)
  Receive Date: 20040608
  Receipt Date: 20030120
  Transmission Date: 20050107
  Serious: Yes (Hospitalization, Other)
  Sender: FDA-Public Use
  Company Number: 200310232BCC

PATIENT
  Age: 28 Year
  Sex: Female
  Weight: 88.4514 kg

DRUGS (5)
  1. ALEVE [Suspect]
     Dosage: ORAL
     Route: 048
     Dates: start: 20030108, end: 20030115
  2. COUMADIN [Concomitant]
  3. ATENOLOL [Concomitant]
  4. PROZAC [Concomitant]
  5. IRON [Concomitant]

REACTIONS (1)
  - HAEMATEMESIS [None]
